FAERS Safety Report 4379062-6 (Version None)
Quarter: 2004Q2

REPORT INFORMATION
  Report Type: 
  Country: None (occurrence: None)
  Receive Date: 20040610
  Receipt Date: 20040528
  Transmission Date: 20050107
  Serious: Yes (Hospitalization)
  Sender: FDA-Public Use
  Company Number: 200411828GDS

PATIENT
  Age: 64 Year
  Sex: Female

DRUGS (3)
  1. PERIPLUM (NIMODIPINE) [Suspect]
     Dosage: BID, ORAL
     Route: 048
     Dates: start: 20040402, end: 20040508
  2. ZYPREXA [Suspect]
     Indication: DYSTHYMIC DISORDER
     Dosage: 5 MG, TOTAL DAILY, ORAL
     Route: 048
     Dates: start: 20040402, end: 20040508
  3. TICLID [Suspect]
     Indication: AUTOIMMUNE DISORDER
     Dosage: 250 MG, QD, ORAL
     Route: 048
     Dates: start: 20040402, end: 20040508

REACTIONS (1)
  - PANCYTOPENIA [None]
